FAERS Safety Report 19299771 (Version 4)
Quarter: 2021Q2

REPORT INFORMATION
  Report Type: Report from Study
  Country: US (occurrence: US)
  Receive Date: 20210525
  Receipt Date: 20210531
  Transmission Date: 20210717
  Serious: Yes (Death, Life-Threatening)
  Sender: FDA-Public Use
  Company Number: US-BIOGEN-2021BI01013945

PATIENT
  Sex: Female

DRUGS (1)
  1. TYSABRI [Suspect]
     Active Substance: NATALIZUMAB
     Indication: MULTIPLE SCLEROSIS
     Route: 042
     Dates: start: 20170118, end: 20210203

REACTIONS (1)
  - Lung neoplasm malignant [Fatal]
